FAERS Safety Report 10058015 (Version 1)
Quarter: 2014Q2

REPORT INFORMATION
  Report Type: Spontaneous
  Country: US (occurrence: None)
  Receive Date: 20140403
  Receipt Date: 20140403
  Transmission Date: 20141212
  Serious: Yes (Other)
  Sender: FDA-Public Use
  Company Number: None

PATIENT
  Age: 57 Year
  Sex: Female
  Weight: 113.4 kg

DRUGS (2)
  1. PERIDEX [Suspect]
     Indication: DENTAL OPERATION
     Dosage: 15 ML, THREE TIMES DAILY, RINSE SURGICAL SITE AND SPIT OUT
  2. PERIDEX [Suspect]
     Indication: POSTOPERATIVE CARE
     Dosage: 15 ML, THREE TIMES DAILY, RINSE SURGICAL SITE AND SPIT OUT

REACTIONS (2)
  - Urticaria [None]
  - Drug effect decreased [None]
